FAERS Safety Report 5227781-1 (Version None)
Quarter: 2007Q1

REPORT INFORMATION
  Report Type: 
  Country: None (occurrence: None)
  Receive Date: 20070202
  Receipt Date: 20070124
  Transmission Date: 20070707
  Serious: Yes (Other)
  Sender: FDA-Public Use
  Company Number: US-PFIZER INC-2007007277

PATIENT
  Sex: Female
  Weight: 74.8 kg

DRUGS (2)
  1. LYRICA [Suspect]
     Indication: PAIN
     Dates: start: 20050101, end: 20060201
  2. OXYCODONE HCL [Concomitant]

REACTIONS (2)
  - FALL [None]
  - PAIN [None]
